FAERS Safety Report 18106241 (Version 1)
Quarter: 2020Q3

REPORT INFORMATION
  Report Type: Spontaneous
  Country: US (occurrence: US)
  Receive Date: 20200803
  Receipt Date: 20200803
  Transmission Date: 20201103
  Serious: No
  Sender: FDA-Public Use
  Company Number: None

PATIENT
  Age: 39 Year
  Sex: Female
  Weight: 75.6 kg

DRUGS (4)
  1. TRADER JOES HAND SANITIZER GRAPEFRUIT LEMON [Suspect]
     Active Substance: ALCOHOL
     Indication: INFECTION PROPHYLAXIS
     Dosage: ?          QUANTITY:1 SPRAY(S);?
     Route: 061
  2. TRADER JOES HAND SANITIZER WITH MOISTURIZERS AND VITAMIN E [Suspect]
     Active Substance: ALCOHOL
     Indication: INFECTION PROPHYLAXIS
     Dosage: QUANTITY: 1 SPRAY
     Route: 061
  3. 24?HOUR ZYRTEC [Concomitant]
  4. TAYTULLA [Concomitant]
     Active Substance: ETHINYL ESTRADIOL\NORETHINDRONE ACETATE

REACTIONS (2)
  - Nausea [None]
  - Product odour abnormal [None]

NARRATIVE: CASE EVENT DATE: 20200701
